FAERS Safety Report 9649147 (Version 1)
Quarter: 2013Q4

REPORT INFORMATION
  Report Type: Spontaneous
  Country: US (occurrence: US)
  Receive Date: 20131028
  Receipt Date: 20131028
  Transmission Date: 20140711
  Serious: No
  Sender: FDA-Public Use
  Company Number: -SAAVPROD-POMP-1003156

PATIENT
  Age: 69 Year
  Sex: Female

DRUGS (2)
  1. ALGLUCOSIDASE ALFA [Suspect]
     Indication: GLYCOGEN STORAGE DISEASE TYPE II
     Dosage: 1700 MG, Q2W
     Dates: start: 20100624
  2. UNSPECIFIED STEROIDS [Concomitant]
     Indication: PREMEDICATION
     Dosage: UNK

REACTIONS (1)
  - Cataract [Not Recovered/Not Resolved]
